FAERS Safety Report 13884078 (Version 1)
Quarter: 2017Q3

REPORT INFORMATION
  Report Type: Spontaneous
  Country: US (occurrence: US)
  Receive Date: 20170820
  Receipt Date: 20170820
  Transmission Date: 20171127
  Serious: Yes (Other)
  Sender: FDA-Public Use
  Company Number: None

PATIENT
  Age: 49 Year
  Sex: Female
  Weight: 55.8 kg

DRUGS (4)
  1. BUPROPION HCL (SR) 200 MG [Suspect]
     Active Substance: BUPROPION HYDROCHLORIDE
     Indication: DEPRESSION
     Dosage: ?          QUANTITY:60 ;?
     Route: 048
     Dates: start: 20170816, end: 20170820
  2. MULTIVITAMIN [Concomitant]
     Active Substance: VITAMINS
  3. FISH OIL [Concomitant]
     Active Substance: FISH OIL
  4. BLACK COHOSH [Concomitant]
     Active Substance: BLACK COHOSH

REACTIONS (7)
  - Insomnia [None]
  - Depression [None]
  - Tinnitus [None]
  - Visual impairment [None]
  - Disease recurrence [None]
  - Product substitution issue [None]
  - Irritability [None]

NARRATIVE: CASE EVENT DATE: 20170820
